FAERS Safety Report 5710440-6 (Version None)
Quarter: 2008Q2

REPORT INFORMATION
  Report Type: 
  Country: None (occurrence: None)
  Receive Date: 20080418
  Receipt Date: 20080408
  Transmission Date: 20081010
  Serious: Yes (Hospitalization)
  Sender: FDA-Public Use
  Company Number: DE-PFIZER INC-2008033720

PATIENT
  Sex: Male
  Weight: 71 kg

DRUGS (1)
  1. SUTENT [Suspect]
     Indication: RENAL CELL CARCINOMA
     Dosage: DAILY DOSE:50MG-FREQ:DAILY
     Route: 048

REACTIONS (4)
  - DIARRHOEA [None]
  - DISORIENTATION [None]
  - MEMORY IMPAIRMENT [None]
  - VOMITING [None]
